FAERS Safety Report 16740779 (Version 2)
Quarter: 2019Q3

REPORT INFORMATION
  Report Type: Report from Study
  Country: US (occurrence: US)
  Receive Date: 20190826
  Receipt Date: 20190917
  Transmission Date: 20191005
  Serious: Yes (Hospitalization)
  Sender: FDA-Public Use
  Company Number: US-JNJFOC-20190828592

PATIENT
  Age: 82 Year
  Sex: Female

DRUGS (10)
  1. LISINOPRIL. [Concomitant]
     Active Substance: LISINOPRIL
  2. NORTRIPTYLINE                      /00006502/ [Concomitant]
     Active Substance: NORTRIPTYLINE HYDROCHLORIDE
  3. METOPROLOL. [Concomitant]
     Active Substance: METOPROLOL
  4. FLUTICASONE. [Concomitant]
     Active Substance: FLUTICASONE
  5. IMBRUVICA [Suspect]
     Active Substance: IBRUTINIB
     Dosage: 280 MG, QD
     Route: 048
     Dates: start: 2019, end: 20190729
  6. AMLODIPINE [Concomitant]
     Active Substance: AMLODIPINE BESYLATE
  7. LINEZOLID. [Concomitant]
     Active Substance: LINEZOLID
  8. GABAPENTIN. [Concomitant]
     Active Substance: GABAPENTIN
  9. IMBRUVICA [Suspect]
     Active Substance: IBRUTINIB
     Indication: CHRONIC LYMPHOCYTIC LEUKAEMIA
     Route: 048
     Dates: start: 20190104, end: 20190807
  10. PLAVIX [Concomitant]
     Active Substance: CLOPIDOGREL BISULFATE

REACTIONS (5)
  - Hypotension [Unknown]
  - Lymphadenopathy [Unknown]
  - Atrial fibrillation [Unknown]
  - Flatulence [Unknown]
  - Staphylococcal infection [Recovering/Resolving]

NARRATIVE: CASE EVENT DATE: 20190723
